FAERS Safety Report 22320004 (Version 1)
Quarter: 2023Q2

REPORT INFORMATION
  Report Type: Other
  Country: BR (occurrence: BR)
  Receive Date: 20230515
  Receipt Date: 20230515
  Transmission Date: 20230722
  Serious: Yes (Other)
  Sender: FDA-Public Use
  Company Number: BR-002147023-NVSC2021BR097769

PATIENT
  Age: 50 Year
  Sex: Female
  Weight: 54 kg

DRUGS (9)
  1. XOLAIR [Suspect]
     Active Substance: OMALIZUMAB
     Indication: Urticaria
     Dosage: UNK, QMO (2 FLASK AMPOULE)
     Route: 065
     Dates: start: 20201013
  2. XOLAIR [Suspect]
     Active Substance: OMALIZUMAB
     Indication: Chronic spontaneous urticaria
     Dosage: UNK, QMO (PEN READY)
     Route: 065
     Dates: start: 202201, end: 202207
  3. XOLAIR [Suspect]
     Active Substance: OMALIZUMAB
     Dosage: UNK, QMO (IT IS DILUTED  ON THE SPOT)
     Route: 065
     Dates: start: 202208
  4. XOLAIR [Suspect]
     Active Substance: OMALIZUMAB
     Dosage: UNK (DILUTED)
     Route: 065
     Dates: start: 20220819
  5. XOLAIR [Suspect]
     Active Substance: OMALIZUMAB
     Dosage: UNK
     Route: 065
  6. XOLAIR [Suspect]
     Active Substance: OMALIZUMAB
     Dosage: UNK UNK, QMO (300 ML)
     Dates: start: 202001, end: 20221226
  7. XOLAIR [Suspect]
     Active Substance: OMALIZUMAB
     Dosage: UNK
     Route: 065
     Dates: start: 20221226
  8. DESLORATADINE [Suspect]
     Active Substance: DESLORATADINE
     Indication: Antiallergic therapy
     Dosage: 4 DOSAGE FORM, QD (2 IN THE MORNING, AND 2 AT NIGHT))
     Route: 065
     Dates: start: 201909
  9. DESLORATADINE [Suspect]
     Active Substance: DESLORATADINE
     Indication: Urticaria
     Dosage: 2 DOSAGE FORM
     Route: 065

REACTIONS (7)
  - Urticaria [Recovering/Resolving]
  - Application site pruritus [Unknown]
  - Blister [Recovered/Resolved]
  - Insomnia [Unknown]
  - Erythema [Unknown]
  - Urticaria [Recovered/Resolved]
  - Drug ineffective [Unknown]

NARRATIVE: CASE EVENT DATE: 20210420
